FAERS Safety Report 24376602 (Version 1)
Quarter: 2024Q3

REPORT INFORMATION
  Report Type: Spontaneous
  Country: SI (occurrence: SI)
  Receive Date: 20240930
  Receipt Date: 20240930
  Transmission Date: 20241016
  Serious: Yes (Other)
  Sender: MYLAN
  Company Number: SI-MYLANLABS-2024M1084558

PATIENT
  Sex: Female

DRUGS (11)
  1. LYRICA [Suspect]
     Active Substance: PREGABALIN
     Indication: Product used for unknown indication
     Dosage: UNK
     Route: 065
  2. LYRICA [Suspect]
     Active Substance: PREGABALIN
     Dosage: 150 MILLIGRAM, BID, DOSE INCREASED
     Route: 065
  3. LYRICA [Suspect]
     Active Substance: PREGABALIN
     Dosage: DOSE DECREASED
     Route: 065
  4. XALATAN [Suspect]
     Active Substance: LATANOPROST
     Indication: Product used for unknown indication
     Dosage: 1 DOSAGE FORM, BID (1 DROP, EACH EYE)
     Route: 047
  5. XALATAN [Suspect]
     Active Substance: LATANOPROST
     Dosage: DOSE DECREASED
     Route: 047
  6. CANDESARTAN CILEXETIL [Concomitant]
     Active Substance: CANDESARTAN CILEXETIL
     Indication: Product used for unknown indication
     Dosage: UNK
     Route: 065
  7. Codilek [Concomitant]
     Indication: Product used for unknown indication
     Dosage: 10 MILLIGRAM, BID (2X10)
     Route: 065
  8. Codilek [Concomitant]
     Dosage: 20 MILLIGRAM, BID (2X20)
     Route: 065
  9. LECALPIN [Concomitant]
     Indication: Product used for unknown indication
     Dosage: UNK
     Route: 065
  10. INDAPAMIDE [Concomitant]
     Active Substance: INDAPAMIDE
     Indication: Product used for unknown indication
     Dosage: UNK
     Route: 065
  11. COSOPT [Concomitant]
     Active Substance: DORZOLAMIDE HYDROCHLORIDE\TIMOLOL MALEATE
     Indication: Product used for unknown indication
     Dosage: 1 DOSAGE FORM, BID (DROP EACH EYE)
     Route: 047

REACTIONS (10)
  - Blindness unilateral [Unknown]
  - Dysdiadochokinesis [Recovering/Resolving]
  - Muscle strength abnormal [Unknown]
  - Sensory disturbance [Recovering/Resolving]
  - Restless legs syndrome [Recovering/Resolving]
  - Muscular weakness [Unknown]
  - Burning sensation [Recovering/Resolving]
  - Condition aggravated [Recovering/Resolving]
  - Hyporeflexia [Recovering/Resolving]
  - Dysarthria [Recovering/Resolving]
